FAERS Safety Report 24744886 (Version 1)
Quarter: 2024Q4

REPORT INFORMATION
  Report Type: Spontaneous
  Country: US (occurrence: None)
  Receive Date: 20241217
  Receipt Date: 20241217
  Transmission Date: 20250114
  Serious: Yes (Life-Threatening, Hospitalization)
  Sender: Public
  Company Number: None

PATIENT
  Age: 53 Year
  Sex: Female
  Weight: 68.4 kg

DRUGS (2)
  1. MINOCYCLINE [Suspect]
     Active Substance: MINOCYCLINE HYDROCHLORIDE
     Indication: Acne
     Dosage: OTHER QUANTITY : 1 CAPSULE(S);?
     Route: 048
     Dates: start: 20241008, end: 20241209
  2. WARFARIN [Concomitant]
     Active Substance: WARFARIN

REACTIONS (9)
  - Nausea [None]
  - Vertigo [None]
  - Headache [None]
  - Blindness unilateral [None]
  - Middle insomnia [None]
  - Gait inability [None]
  - Transient ischaemic attack [None]
  - Cerebral thrombosis [None]
  - Therapy cessation [None]

NARRATIVE: CASE EVENT DATE: 20241126
